FAERS Safety Report 5993332-7 (Version None)
Quarter: 2008Q4

REPORT INFORMATION
  Report Type: 
  Country: None (occurrence: None)
  Receive Date: 20081210
  Receipt Date: 20081210
  Transmission Date: 20090506
  Serious: Yes (Hospitalization)
  Sender: FDA-Public Use
  Company Number: None

PATIENT
  Age: 78 Year
  Sex: Female
  Weight: 57.6068 kg

DRUGS (1)
  1. BONIVA [Suspect]
     Indication: OSTEOPOROSIS
     Dosage: 1 PILL PER MONTH ONLY TOOK ONE DOSE
     Dates: start: 20080705, end: 20080805

REACTIONS (2)
  - ARTHRALGIA [None]
  - JOINT SWELLING [None]
